FAERS Safety Report 7808626-X (Version None)
Quarter: 2011Q4

REPORT INFORMATION
  Report Type: 
  Country: None (occurrence: None)
  Receive Date: 20111012
  Receipt Date: 20111007
  Transmission Date: 20120403
  Serious: Yes (Other)
  Sender: FDA-Public Use
  Company Number: US-AMGEN-USASP2011052159

PATIENT
  Sex: Male

DRUGS (2)
  1. AZATHIOPRINE [Concomitant]
     Indication: IDIOPATHIC THROMBOCYTOPENIC PURPURA
  2. NPLATE [Suspect]
     Indication: IDIOPATHIC THROMBOCYTOPENIC PURPURA
     Dates: start: 20100401

REACTIONS (4)
  - THROMBOSIS [None]
  - MYOCARDIAL INFARCTION [None]
  - EMBOLISM [None]
  - CEREBROVASCULAR ACCIDENT [None]
